FAERS Safety Report 25961131 (Version 1)
Quarter: 2025Q4

REPORT INFORMATION
  Report Type: Spontaneous
  Country: EU (occurrence: EU)
  Receive Date: 20251027
  Receipt Date: 20251027
  Transmission Date: 20260118
  Serious: Yes (Other)
  Sender: Medicap Laboratories
  Company Number: EU-Medicap-000090

PATIENT
  Age: 66 Year
  Sex: Female

DRUGS (2)
  1. ESCITALOPRAM [Suspect]
     Active Substance: ESCITALOPRAM OXALATE
     Indication: Major depression
     Route: 065
  2. QUETIAPINE [Suspect]
     Active Substance: QUETIAPINE
     Indication: Major depression
     Route: 065

REACTIONS (3)
  - Withdrawal catatonia [Recovering/Resolving]
  - Oedema peripheral [Unknown]
  - Somnolence [Unknown]
